FAERS Safety Report 7800962-6 (Version None)
Quarter: 2011Q4

REPORT INFORMATION
  Report Type: 
  Country: None (occurrence: None)
  Receive Date: 20111007
  Receipt Date: 20110927
  Transmission Date: 20120403
  Serious: Yes (Life-Threatening, Hospitalization)
  Sender: FDA-Public Use
  Company Number: JP-AMGEN-JPNSP2011025371

PATIENT
  Age: 73 Year
  Sex: Female
  Weight: 49.8 kg

DRUGS (25)
  1. ENBREL [Suspect]
     Indication: RHEUMATOID ARTHRITIS
     Dosage: UNK
     Route: 058
     Dates: start: 20071001
  2. PREDNISOLONE [Concomitant]
     Dosage: UNK
     Route: 048
     Dates: start: 20110223
  3. KENACORT                           /00031901/ [Concomitant]
     Dosage: UNK
  4. MUCOSTA [Concomitant]
     Dosage: UNK
  5. PREDNISOLONE [Concomitant]
     Dosage: UNK
     Route: 048
     Dates: start: 20101025, end: 20101205
  6. PROGRAF [Concomitant]
     Indication: RHEUMATOID ARTHRITIS
     Dosage: UNK
     Route: 048
     Dates: start: 20100628, end: 20100912
  7. CELECOXIB [Concomitant]
     Dosage: UNK
  8. PREDNISOLONE [Concomitant]
     Dosage: UNK
     Route: 048
     Dates: start: 20100514, end: 20100627
  9. BASEN [Concomitant]
     Dosage: UNK
  10. REMICADE [Suspect]
     Dosage: UNK
  11. PREDNISOLONE [Concomitant]
     Dosage: UNK
     Route: 048
     Dates: start: 20100628, end: 20100808
  12. PREDNISOLONE [Concomitant]
     Dosage: UNK
     Route: 048
     Dates: start: 20101206, end: 20110222
  13. SULFASALAZINE [Concomitant]
     Dosage: UNK
     Route: 048
     Dates: start: 20110117, end: 20110125
  14. BREDININ [Concomitant]
     Indication: RHEUMATOID ARTHRITIS
     Dosage: UNK
     Route: 048
     Dates: start: 20110126, end: 20110516
  15. SULFAMETHOXAZOLE [Concomitant]
     Dosage: UNK
  16. ENBREL [Suspect]
     Dosage: 25 MG, 2X/WEEK
     Dates: start: 20100419, end: 20110116
  17. ENBREL [Suspect]
     Dosage: 50 MG, WEEKLY
     Dates: start: 20110117, end: 20110425
  18. PREDNISOLONE [Concomitant]
     Dosage: UNK
     Route: 048
     Dates: start: 20100913, end: 20101024
  19. SULFASALAZINE [Concomitant]
     Indication: RHEUMATOID ARTHRITIS
     Dosage: UNK
     Route: 048
     Dates: start: 20101206, end: 20110116
  20. PREDNISOLONE [Concomitant]
     Indication: RHEUMATOID ARTHRITIS
     Dosage: UNK
     Route: 048
     Dates: start: 20100419, end: 20100513
  21. PROGRAF [Concomitant]
     Dosage: UNK
     Route: 048
     Dates: start: 20100913, end: 20101024
  22. RABEPRAZOLE SODIUM [Concomitant]
     Dosage: UNK
  23. JANUVIA [Concomitant]
     Dosage: UNK
  24. ACTONEL [Concomitant]
     Dosage: UNK
  25. MELBIN                             /00082702/ [Concomitant]
     Dosage: UNK

REACTIONS (3)
  - CHOLELITHIASIS [None]
  - PANCREATIC CARCINOMA [None]
  - RENAL MASS [None]
